FAERS Safety Report 7606830-7 (Version None)
Quarter: 2011Q3

REPORT INFORMATION
  Report Type: 
  Country: None (occurrence: None)
  Receive Date: 20110713
  Receipt Date: 20110707
  Transmission Date: 20111222
  Serious: Yes (Death)
  Sender: FDA-Public Use
  Company Number: US-GLAXOSMITHKLINE-A0921311A

PATIENT
  Age: 71 Year
  Sex: Male

DRUGS (1)
  1. PROMACTA [Suspect]
     Indication: IDIOPATHIC THROMBOCYTOPENIC PURPURA
     Dosage: 75MG PER DAY
     Route: 048
     Dates: start: 20110210, end: 20110602

REACTIONS (6)
  - HEADACHE [None]
  - HAEMORRHAGE [None]
  - SPLENOMEGALY [None]
  - DEATH [None]
  - PLATELET COUNT DECREASED [None]
  - DRUG INEFFECTIVE [None]
